FAERS Safety Report 8029362-3 (Version None)
Quarter: 2012Q1

REPORT INFORMATION
  Report Type: 
  Country: None (occurrence: None)
  Receive Date: 20120106
  Receipt Date: 20111228
  Transmission Date: 20120608
  Serious: Yes (Hospitalization)
  Sender: FDA-Public Use
  Company Number: US-ELI_LILLY_AND_COMPANY-US201001004825

PATIENT
  Sex: Male
  Weight: 60 kg

DRUGS (5)
  1. FORTEO [Suspect]
     Dosage: 20 UG, DAILY (1/D)
     Route: 065
  2. ASPIRIN [Concomitant]
  3. FORTEO [Suspect]
     Dosage: 20 UG, QD
  4. FORTEO [Suspect]
     Dosage: 20 UG, QD
  5. FORTEO [Suspect]
     Indication: OSTEOPOROSIS
     Dosage: 20 UG, QD
     Dates: start: 20100101

REACTIONS (4)
  - BRONCHIECTASIS [None]
  - INCORRECT STORAGE OF DRUG [None]
  - INJURY ASSOCIATED WITH DEVICE [None]
  - DEEP VEIN THROMBOSIS [None]
